FAERS Safety Report 17105889 (Version 2)
Quarter: 2020Q1

REPORT INFORMATION
  Report Type: Spontaneous
  Country: CM (occurrence: CM)
  Receive Date: 20191203
  Receipt Date: 20200109
  Transmission Date: 20200409
  Serious: Yes (Disabling)
  Sender: FDA-Public Use
  Company Number: NVSC2019CM055270

PATIENT
  Age: 4 Year
  Sex: Female

DRUGS (2)
  1. BRUSTAN [Concomitant]
     Indication: PRODUCT USED FOR UNKNOWN INDICATION
     Route: 065
  2. COARTEM [Suspect]
     Active Substance: ARTEMETHER\LUMEFANTRINE
     Indication: MALARIA
     Dosage: 2 DF, BID (STRENGTH: 20/120, BOX OF 12 TABLETS)
     Route: 048

REACTIONS (3)
  - Gastrooesophageal reflux disease [Not Recovered/Not Resolved]
  - Vomiting [Not Recovered/Not Resolved]
  - Product taste abnormal [Unknown]
